FAERS Safety Report 23150309 (Version 1)
Quarter: 2023Q4

REPORT INFORMATION
  Report Type: Spontaneous
  Country: US (occurrence: US)
  Receive Date: 20231106
  Receipt Date: 20231106
  Transmission Date: 20240110
  Serious: Yes (Other)
  Sender: FDA-Public Use
  Company Number: US-BAYER-2023A153278

PATIENT
  Age: 78 Year
  Sex: Female

DRUGS (2)
  1. ALKA-SELTZER PLUS SEVERE COUGH AND COLD DAY AND NIGHT [Suspect]
     Active Substance: ACETAMINOPHEN\DEXTROMETHORPHAN HYDROBROMIDE\DOXYLAMINE SUCCINATE\GUAIFENESIN\PHENYLEPHRINE HYDROCHLO
     Indication: Hypersensitivity
     Route: 048
     Dates: start: 20231026
  2. ALKA-SELTZER PLUS SEVERE COUGH AND COLD DAY AND NIGHT [Suspect]
     Active Substance: ACETAMINOPHEN\DEXTROMETHORPHAN HYDROBROMIDE\DOXYLAMINE SUCCINATE\GUAIFENESIN\PHENYLEPHRINE HYDROCHLO
     Indication: Nasopharyngitis

REACTIONS (1)
  - Foreign body in throat [Not Recovered/Not Resolved]
